FAERS Safety Report 7733341-0 (Version None)
Quarter: 2011Q3

REPORT INFORMATION
  Report Type: 
  Country: None (occurrence: None)
  Receive Date: 20110902
  Receipt Date: 20110902
  Transmission Date: 20111222
  Serious: Yes (Other)
  Sender: FDA-Public Use
  Company Number: None

PATIENT
  Sex: Female
  Weight: 49.4421 kg

DRUGS (1)
  1. ROCEPHIN [Suspect]
     Dosage: 2MGS 1 TIME INJECTION
     Dates: start: 20110820

REACTIONS (2)
  - CONVULSION [None]
  - PELVIC PAIN [None]
